FAERS Safety Report 4356277-4 (Version None)
Quarter: 2004Q2

REPORT INFORMATION
  Report Type: 
  Country: None (occurrence: None)
  Receive Date: 20040510
  Receipt Date: 20040510
  Transmission Date: 20050107
  Serious: Yes (Hospitalization)
  Sender: FDA-Public Use
  Company Number: None

PATIENT
  Age: 81 Year
  Sex: Female
  Weight: 38.9 kg

DRUGS (10)
  1. DILTIAZEM [Suspect]
  2. IPRATROPIUM INHALER [Concomitant]
  3. DOCUSATE [Concomitant]
  4. ACETAMINOPHEN [Concomitant]
  5. MEGESTROL [Concomitant]
  6. OXYBUTYNIN [Concomitant]
  7. CIMETIDINE HCL [Concomitant]
  8. PREMARIN VAGINAL CREAM [Concomitant]
  9. PIRBUTEROL AUTOHALER [Concomitant]
  10. DICYCLOMINE HCL [Concomitant]

REACTIONS (1)
  - CONSTIPATION [None]
